FAERS Safety Report 8322606-X (Version None)
Quarter: 2012Q2

REPORT INFORMATION
  Report Type: 
  Country: None (occurrence: None)
  Receive Date: 20120430
  Receipt Date: 20081113
  Transmission Date: 20120825
  Serious: Yes (Hospitalization)
  Sender: FDA-Public Use
  Company Number: US-TEVA-US025039

PATIENT
  Age: 45 Year
  Sex: Female

DRUGS (1)
  1. MODAFINIL [Suspect]
     Route: 048

REACTIONS (2)
  - OVERDOSE [None]
  - CONVULSION [None]
